FAERS Safety Report 7421719-4 (Version None)
Quarter: 2011Q2

REPORT INFORMATION
  Report Type: 
  Country: None (occurrence: None)
  Receive Date: 20110418
  Receipt Date: 20110216
  Transmission Date: 20111010
  Serious: Yes (Other)
  Sender: FDA-Public Use
  Company Number: US-BAYER-201031594NA

PATIENT
  Age: 22 Year
  Sex: Female

DRUGS (8)
  1. YAZ [Suspect]
     Indication: ORAL CONTRACEPTION
     Dosage: UNK
     Dates: start: 20080130, end: 20080917
  2. YASMIN [Suspect]
     Indication: ORAL CONTRACEPTION
     Dosage: UNK
  3. SINGULAIR [Concomitant]
  4. LEXAPRO [Concomitant]
     Indication: DEPRESSION
     Dosage: UNK
     Dates: start: 20110130
  5. CHANTIX [Concomitant]
     Indication: EX-TOBACCO USER
  6. ORTHO TRI-CYCLEN LO [Concomitant]
     Indication: ORAL CONTRACEPTION
     Dosage: UNK
     Dates: start: 20080917
  7. LEXAPRO [Concomitant]
     Indication: PREMENSTRUAL SYNDROME
     Dosage: UNK
     Dates: start: 20080130
  8. IMITREX [Concomitant]

REACTIONS (5)
  - CHOLECYSTITIS CHRONIC [None]
  - METRORRHAGIA [None]
  - MIGRAINE [None]
  - GALLBLADDER INJURY [None]
  - CHOLELITHIASIS [None]
